FAERS Safety Report 6925329-4 (Version None)
Quarter: 2010Q3

REPORT INFORMATION
  Report Type: 
  Country: None (occurrence: None)
  Receive Date: 20100816
  Receipt Date: 20100803
  Transmission Date: 20110219
  Serious: Yes (Other)
  Sender: FDA-Public Use
  Company Number: BR-JNJFOC-20100801893

PATIENT
  Age: 53 Year
  Sex: Female

DRUGS (5)
  1. INFLIXIMAB, RECOMBINANT [Suspect]
     Indication: RHEUMATOID ARTHRITIS
  2. METHOTREXATE [Concomitant]
     Indication: RHEUMATOID ARTHRITIS
  3. METHOTREXATE [Concomitant]
  4. LEFLUNOMIDE [Concomitant]
     Indication: RHEUMATOID ARTHRITIS
  5. ADALIMUMAB [Concomitant]
     Indication: RHEUMATOID ARTHRITIS

REACTIONS (2)
  - CHRONIC MYELOID LEUKAEMIA [None]
  - INFUSION RELATED REACTION [None]
